FAERS Safety Report 9243328 (Version 1)
Quarter: 2013Q2

REPORT INFORMATION
  Report Type: Spontaneous
  Country: IT (occurrence: IT)
  Receive Date: 20130419
  Receipt Date: 20130419
  Transmission Date: 20140414
  Serious: Yes (Life-Threatening, Hospitalization)
  Sender: FDA-Public Use
  Company Number: CHPA2013IT006712

PATIENT
  Age: 61 Year
  Sex: Female

DRUGS (1)
  1. BENEFIBER GUAR GUM UNKNOWN FORM [Suspect]
     Indication: LAXATIVE SUPPORTIVE CARE
     Dosage: UNK, UNK
     Route: 065

REACTIONS (2)
  - Hypokalaemia [Recovered/Resolved]
  - Diarrhoea [Recovered/Resolved]
